FAERS Safety Report 7557084-1 (Version None)
Quarter: 2011Q2

REPORT INFORMATION
  Report Type: 
  Country: None (occurrence: None)
  Receive Date: 20110620
  Receipt Date: 20110616
  Transmission Date: 20111010
  Serious: Yes (Other)
  Sender: FDA-Public Use
  Company Number: JP-PFIZER INC-2011130281

PATIENT
  Age: 68 Year
  Sex: Female

DRUGS (6)
  1. BISOLVON [Concomitant]
     Dosage: 8MG, DAILY
     Route: 048
  2. LEVOTHYROXINE SODIUM [Concomitant]
     Dosage: 50UG, DAILY
     Route: 048
  3. LEVOTHYROXINE SODIUM [Concomitant]
     Indication: THYROID DISORDER
     Dosage: 25UG, DAILY
     Route: 048
  4. EMPYNASE [Concomitant]
     Dosage: 36000IU, DAILY
     Route: 048
  5. ZOLOFT [Suspect]
     Dosage: 25 MG, DAILY
     Route: 048
  6. ARTANE [Suspect]
     Dosage: 4 MG, 2X/DAY
     Route: 048

REACTIONS (1)
  - DYSKINESIA [None]
